FAERS Safety Report 19214453 (Version 1)
Quarter: 2021Q2

REPORT INFORMATION
  Report Type: Report from Study
  Country: IT (occurrence: IT)
  Receive Date: 20210505
  Receipt Date: 20210505
  Transmission Date: 20210717
  Serious: Yes (Hospitalization)
  Sender: FDA-Public Use
  Company Number: IT-TEVA-2021-IT-1906513

PATIENT
  Age: 71 Year
  Sex: Male

DRUGS (16)
  1. ADRIBLASTINA 10 MG/5 ML POLVERE E SOLVENTE PER SOLUZIONE INIETTABILE [Suspect]
     Active Substance: DOXORUBICIN HYDROCHLORIDE
     Dosage: 42 MG
     Route: 042
     Dates: start: 20210312, end: 20210312
  2. PANTOPRAZOLE [Concomitant]
     Active Substance: PANTOPRAZOLE
  3. DUTASTERIDE. [Concomitant]
     Active Substance: DUTASTERIDE
  4. LAMIVUDINE. [Concomitant]
     Active Substance: LAMIVUDINE
  5. DELTACORTENE 25 MG COMPRESSE [Concomitant]
     Active Substance: PREDNISONE
     Dosage: 2 DF
  6. TAMSULOSIN HYDROCHLORIDE. [Concomitant]
     Active Substance: TAMSULOSIN HYDROCHLORIDE
  7. NEULASTA 6 MG SOLUTION FOR INJECTION [Concomitant]
  8. VINCRISTINA TEVA ITALIA 1 MG/ML SOLUZIONE INIETTABILE [Suspect]
     Active Substance: VINCRISTINE SULFATE
     Dosage: 1.2 MG
     Route: 042
     Dates: start: 20210312, end: 20210312
  9. RIXATHON [Suspect]
     Active Substance: RITUXIMAB
     Dosage: 630 MG
     Route: 042
     Dates: start: 20210312, end: 20210312
  10. ENDOXAN BAXTER 1 G POLVERE PER SOLUZIONE INIETTABILE [Suspect]
     Active Substance: CYCLOPHOSPHAMIDE
     Dosage: 1020 MG
     Route: 042
     Dates: start: 20210312, end: 20210312
  11. KCL?RETARD 600 MG COMPRESSE A RILASCIO PROLUNGATO [Concomitant]
     Active Substance: POTASSIUM CHLORIDE
  12. BISOPROLOL FUMARATE. [Concomitant]
     Active Substance: BISOPROLOL FUMARATE
  13. SPIOLTO RESPIMAT 2,5 MICROGRAMMI/2,5 MICROGRAMMI, SOLUZIONE PER INALAZ [Concomitant]
  14. VALGANCICLOVIR HYDROCHLORIDE. [Concomitant]
     Active Substance: VALGANCICLOVIR HYDROCHLORIDE
  15. BACTRIM [Concomitant]
     Active Substance: SULFAMETHOXAZOLE\TRIMETHOPRIM
  16. MICARDISPLUS 80?MG/12.5?MG TABLETS [Concomitant]

REACTIONS (1)
  - Pneumonitis [Recovered/Resolved]

NARRATIVE: CASE EVENT DATE: 20210318
